FAERS Safety Report 10037561 (Version 2)
Quarter: 2014Q2

REPORT INFORMATION
  Report Type: Spontaneous
  Country: US (occurrence: US)
  Receive Date: 20140326
  Receipt Date: 20140410
  Transmission Date: 20141212
  Serious: Yes (Hospitalization)
  Sender: FDA-Public Use
  Company Number: US-AMGEN-USASP2014019860

PATIENT
  Age: 72 Year
  Sex: Female
  Weight: 107.94 kg

DRUGS (23)
  1. PROLIA [Suspect]
     Indication: OSTEOPOROSIS
     Dosage: 60 MG, Q6MO
     Route: 058
     Dates: end: 20140314
  2. VITAMIN D2 [Concomitant]
     Dosage: 50000 UNIT, 2 TIMES/WK
     Route: 048
  3. PREDNISONE [Concomitant]
     Dosage: 10 MG, QD
     Route: 048
  4. NASONEX [Concomitant]
     Dosage: 50 MUG, QD
  5. MAGNESIUM OXIDE [Concomitant]
     Dosage: 500 MG, QD
     Route: 048
  6. TOPROL XL [Concomitant]
     Dosage: 75 MG, TID
     Route: 048
  7. DURAGESIC                          /00070401/ [Concomitant]
     Dosage: 50 MUG, EVERY 72 HR
     Route: 062
  8. LOVASTATIN [Concomitant]
     Dosage: 20 MG, QD
     Route: 048
  9. POTASSIUM [Concomitant]
     Dosage: 99 MG, QD
     Route: 048
  10. COUMADIN                           /00014802/ [Concomitant]
     Dosage: 3 MG, QD
     Route: 048
  11. PROTONIX [Concomitant]
     Dosage: 40 MG, QD
     Route: 048
  12. ASPIRIN [Concomitant]
     Dosage: 81 MG, QD
     Route: 048
  13. ROXICODONE [Concomitant]
     Dosage: 5 MG, EVERY 4-6 HOURS
     Route: 048
  14. NITROGLYCERINE [Concomitant]
     Dosage: 0.4 MG, UNK
     Route: 060
  15. CLARITIN                           /00917501/ [Concomitant]
     Dosage: 10 MG, QD
     Route: 048
  16. XANAX [Concomitant]
     Dosage: 1 MG, TID
     Route: 048
  17. GAS-X [Concomitant]
     Dosage: UNK UNK, AS NECESSARY
  18. AMIODARONE [Concomitant]
     Dosage: 200 MG, QD
     Route: 048
  19. MICARDIS [Concomitant]
     Dosage: 80 MG, QD
     Route: 048
  20. IMODIUM A-D [Concomitant]
     Dosage: UNK UNK, AS NECESSARY
  21. CITALOPRAM [Concomitant]
     Dosage: 20 MG, QD
     Route: 048
  22. LATANOPROST [Concomitant]
     Dosage: 0.005 %, QD
     Route: 047
  23. LASIX                              /00032601/ [Concomitant]
     Dosage: 40 MG, QD
     Route: 048

REACTIONS (3)
  - Hypophosphataemia [Unknown]
  - Asthenia [Unknown]
  - Blood calcium decreased [Unknown]
